FAERS Safety Report 7979249-7 (Version None)
Quarter: 2011Q4

REPORT INFORMATION
  Report Type: 
  Country: None (occurrence: None)
  Receive Date: 20111214
  Receipt Date: 20111214
  Transmission Date: 20120403
  Serious: Yes (Hospitalization)
  Sender: FDA-Public Use
  Company Number: None

PATIENT
  Sex: Male
  Weight: 92 kg

DRUGS (11)
  1. ASPIRIN [Concomitant]
     Indication: HIP SURGERY
     Route: 048
  2. SENOKOT [Concomitant]
     Route: 048
  3. VITAMIN D [Concomitant]
  4. AVELOX [Concomitant]
     Route: 048
  5. CHROMAGEN [Concomitant]
  6. ATENOLOL [Concomitant]
  7. SYNTHROID [Concomitant]
     Route: 048
  8. XARELTO [Suspect]
     Indication: THROMBOSIS PROPHYLAXIS
     Dosage: 10 MG
     Route: 048
     Dates: start: 20111209, end: 20111211
  9. HYDROCHLOROTHIAZIDE [Concomitant]
  10. FLOMAX [Concomitant]
  11. CRESTOR [Concomitant]
     Route: 048

REACTIONS (3)
  - HAEMATOMA [None]
  - HAEMOGLOBIN DECREASED [None]
  - HAEMORRHAGE [None]
